FAERS Safety Report 5120200-5 (Version None)
Quarter: 2006Q3

REPORT INFORMATION
  Report Type: 
  Country: None (occurrence: None)
  Receive Date: 20060928
  Receipt Date: 20060830
  Transmission Date: 20061208
  Serious: Yes (Other)
  Sender: FDA-Public Use
  Company Number: 2006110748

PATIENT
  Sex: Male

DRUGS (3)
  1. MEDROL [Suspect]
     Dosage: 4 MG, ORAL
     Route: 048
     Dates: start: 20060101
  2. ALL OTHER THERAPEUTIC PRODUCTS [Concomitant]
  3. TACROLIMUS [Concomitant]

REACTIONS (1)
  - POLYURIA [None]
